FAERS Safety Report 8453123-4 (Version None)
Quarter: 2012Q2

REPORT INFORMATION
  Report Type: 
  Country: None (occurrence: None)
  Receive Date: 20120620
  Receipt Date: 20120508
  Transmission Date: 20120825
  Serious: No
  Sender: FDA-Public Use
  Company Number: US-VERTEX PHARMACEUTICALS INC.-AE-2012-006666

PATIENT
  Sex: Female
  Weight: 56.75 kg

DRUGS (6)
  1. PEGASYS [Concomitant]
     Indication: HEPATITIS C
     Route: 058
     Dates: start: 20120125, end: 20120501
  2. INCIVEK [Suspect]
     Indication: HEPATITIS C
     Route: 048
     Dates: start: 20120125, end: 20120401
  3. RIBAVIRIN [Concomitant]
     Dates: start: 20120301, end: 20120401
  4. RIBAVIRIN [Concomitant]
     Dates: start: 20120401
  5. PEGASYS [Concomitant]
     Route: 058
     Dates: start: 20120501
  6. RIBAVIRIN [Concomitant]
     Indication: HEPATITIS C
     Dates: start: 20120125, end: 20120301

REACTIONS (1)
  - ANAEMIA [None]
